FAERS Safety Report 9120736 (Version 5)
Quarter: 2013Q2

REPORT INFORMATION
  Report Type: Report from Study
  Country: DE (occurrence: DE)
  Receive Date: 20130226
  Receipt Date: 20130615
  Transmission Date: 20140414
  Serious: Yes (Hospitalization)
  Sender: FDA-Public Use
  Company Number: DE-ROCHE-1185637

PATIENT
  Age: 44 Year
  Sex: Male
  Weight: 74 kg

DRUGS (12)
  1. BEVACIZUMAB [Suspect]
     Indication: LUNG NEOPLASM MALIGNANT
     Dosage: LAST DOSE PRIOR TO SAE ON 02/JAN/2013
     Route: 042
     Dates: start: 20120827
  2. PEMETREXED [Suspect]
     Indication: LUNG NEOPLASM MALIGNANT
     Dosage: LAST DOSE PRIOR TO SAE 02/JAN/2013
     Route: 042
     Dates: start: 20120827
  3. VITAMIN B12 [Concomitant]
     Route: 065
     Dates: start: 20130128
  4. FOLIC ACID [Concomitant]
     Route: 065
     Dates: start: 20130128
  5. ZOMETA [Concomitant]
     Route: 065
     Dates: start: 20120917
  6. DEXAMETHASON [Concomitant]
     Route: 065
     Dates: start: 20120827
  7. L-THYROXIN [Concomitant]
     Route: 065
     Dates: start: 2002
  8. PANTOZOL (GERMANY) [Concomitant]
     Route: 065
     Dates: start: 20130102
  9. CODEINE [Concomitant]
     Route: 065
     Dates: start: 201104
  10. ACC [Concomitant]
     Route: 065
     Dates: start: 20121119
  11. BEPANTHEN [Concomitant]
     Route: 065
     Dates: start: 20121119
  12. RIOPAN (GERMANY) [Concomitant]
     Route: 065
     Dates: start: 20130102

REACTIONS (1)
  - Metastases to central nervous system [Recovered/Resolved with Sequelae]
